FAERS Safety Report 11792942 (Version 1)
Quarter: 2015Q4

REPORT INFORMATION
  Report Type: Spontaneous
  Country: IT (occurrence: IT)
  Receive Date: 20151202
  Receipt Date: 20151202
  Transmission Date: 20160305
  Serious: Yes (Hospitalization)
  Sender: FDA-Public Use
  Company Number: IT-BAYER-2015-472139

PATIENT
  Age: 37 Year
  Sex: Female
  Weight: 69.98 kg

DRUGS (1)
  1. PRIMOVIST [Suspect]
     Active Substance: GADOXETATE DISODIUM
     Dosage: 10 ML, ONCE
     Route: 042
     Dates: start: 20151110, end: 20151110

REACTIONS (6)
  - Restlessness [Unknown]
  - Tachycardia [Unknown]
  - Dyspnoea [Unknown]
  - Malaise [Unknown]
  - Nausea [Unknown]
  - Confusional state [Unknown]

NARRATIVE: CASE EVENT DATE: 20151110
